FAERS Safety Report 4729412-3 (Version None)
Quarter: 2005Q3

REPORT INFORMATION
  Report Type: 
  Country: None (occurrence: None)
  Receive Date: 20050728
  Receipt Date: 20050718
  Transmission Date: 20060218
  Serious: Yes (Hospitalization, Other)
  Sender: FDA-Public Use
  Company Number: 2005103651

PATIENT
  Age: 78 Year
  Sex: Female
  Weight: 66.2252 kg

DRUGS (6)
  1. NORVASC [Suspect]
     Indication: BLOOD PRESSURE ABNORMAL
     Dosage: 5 MG (5 MG, 1 IN 1 D), ORAL
     Route: 048
  2. ACCUPRIL [Suspect]
     Indication: BLOOD PRESSURE ABNORMAL
     Dosage: ORAL
     Route: 048
     Dates: end: 20050401
  3. ZETIA [Concomitant]
  4. WELCHOL [Concomitant]
  5. ACTONEL [Concomitant]
  6. NITROGLYCERIN [Concomitant]

REACTIONS (6)
  - BREAST DISCOMFORT [None]
  - BREAST INDURATION [None]
  - DYSPHASIA [None]
  - HYPERTROPHY BREAST [None]
  - LARYNGEAL OEDEMA [None]
  - VASCULAR OCCLUSION [None]
